FAERS Safety Report 14207849 (Version 2)
Quarter: 2018Q1

REPORT INFORMATION
  Report Type: Spontaneous
  Country: IT (occurrence: IT)
  Receive Date: 20171121
  Receipt Date: 20180125
  Transmission Date: 20180508
  Serious: No
  Sender: FDA-Public Use
  Company Number: IT-LUPIN PHARMACEUTICALS INC.-2017-02050

PATIENT
  Age: 61 Year
  Sex: Female

DRUGS (5)
  1. DEXAMETHASONE. [Concomitant]
     Active Substance: DEXAMETHASONE
     Indication: PLASMA CELL MYELOMA
     Dosage: UNK, VTD THERAPY
  2. OXYCODONE HCL / NALOXONE HCL PROLONGED RELEASE TABLETS [Interacting]
     Active Substance: NALOXONE HYDROCHLORIDE\OXYCODONE HYDROCHLORIDE
     Indication: PAIN
     Dosage: UNK
     Route: 065
  3. THALIDOMIDE [Interacting]
     Active Substance: THALIDOMIDE
     Indication: PAIN
     Dosage: UNK
     Route: 065
  4. TRAMADOL. [Suspect]
     Active Substance: TRAMADOL
     Indication: PAIN
     Dosage: UNK
  5. BORTEZOMIB [Concomitant]
     Active Substance: BORTEZOMIB
     Indication: PLASMA CELL MYELOMA
     Dosage: UNK, VTD THERAPY
     Route: 065

REACTIONS (8)
  - Rash erythematous [Recovered/Resolved]
  - Drug interaction [Recovered/Resolved]
  - Pancytopenia [Recovered/Resolved]
  - Pruritus [Recovered/Resolved]
  - Eosinophilia [None]
  - Pyrexia [Recovered/Resolved]
  - Varicella zoster virus infection [None]
  - Drug effect incomplete [Recovered/Resolved]
